FAERS Safety Report 16001601 (Version 1)
Quarter: 2019Q1

REPORT INFORMATION
  Report Type: Spontaneous
  Country: DE (occurrence: DE)
  Receive Date: 20190225
  Receipt Date: 20190225
  Transmission Date: 20190418
  Serious: Yes (Other)
  Sender: FDA-Public Use
  Company Number: PHHY2019DE040583

PATIENT
  Age: 37 Year
  Sex: Male
  Weight: 93 kg

DRUGS (2)
  1. MEDIKINET [Suspect]
     Active Substance: METHYLPHENIDATE
     Indication: ATTENTION DEFICIT/HYPERACTIVITY DISORDER
     Dosage: 420 MG, QD (DOSE SCHEME 180-60-120-60MG)
     Route: 048
     Dates: start: 201706
  2. RITALIN LA [Suspect]
     Active Substance: METHYLPHENIDATE HYDROCHLORIDE
     Indication: ATTENTION DEFICIT/HYPERACTIVITY DISORDER
     Dosage: 80 MG, QD (20-20-20-20 MG)
     Route: 048

REACTIONS (4)
  - Hypermetabolism [Not Recovered/Not Resolved]
  - No adverse event [Unknown]
  - Intentional product misuse [Not Recovered/Not Resolved]
  - Prescribed overdose [Not Recovered/Not Resolved]
